FAERS Safety Report 4399076-X (Version None)
Quarter: 2004Q3

REPORT INFORMATION
  Report Type: 
  Country: None (occurrence: None)
  Receive Date: 20040712
  Receipt Date: 20040617
  Transmission Date: 20050211
  Serious: Yes (Death, Hospitalization)
  Sender: FDA-Public Use
  Company Number: A03200400923

PATIENT
  Age: 77 Year
  Sex: Male

DRUGS (11)
  1. UROXATRAL [Suspect]
     Indication: BENIGN PROSTATIC HYPERPLASIA
     Dosage: ORAL
     Route: 048
     Dates: start: 20031201, end: 20040201
  2. UROXATRAL [Suspect]
     Indication: URINARY RETENTION
     Dosage: ORAL
     Route: 048
     Dates: start: 20031201, end: 20040201
  3. CLONIDINE HCL [Concomitant]
  4. AMANTADINE HCL [Concomitant]
  5. ROPINIROLE HYDROCHLORIDE [Concomitant]
  6. CARBIDOPA-LEVIDOPA [Concomitant]
  7. METFORMIN HCL [Concomitant]
  8. GLIPIZIDE [Concomitant]
  9. FUROSEMIDE [Concomitant]
  10. LISINOPRIL [Concomitant]
  11. TOLTERODINE TARTRATE [Concomitant]

REACTIONS (9)
  - ASTHENIA [None]
  - BONE PAIN [None]
  - FALL [None]
  - ORTHOSTATIC HYPOTENSION [None]
  - REFUSAL OF TREATMENT BY PATIENT [None]
  - SUBDURAL HAEMATOMA [None]
  - SYNCOPE [None]
  - TYMPANIC MEMBRANE PERFORATION [None]
  - VERTIGO [None]
